FAERS Safety Report 26119173 (Version 1)
Quarter: 2025Q4

REPORT INFORMATION
  Report Type: Spontaneous
  Country: US (occurrence: US)
  Receive Date: 20251204
  Receipt Date: 20251204
  Transmission Date: 20260118
  Serious: No
  Sender: ALEXION PHARMACEUTICALS
  Company Number: US-ASTRAZENECA-202511GLO028136US

PATIENT
  Sex: Male

DRUGS (5)
  1. BUDESONIDE [Suspect]
     Active Substance: BUDESONIDE
     Indication: Chronic obstructive pulmonary disease
     Dosage: UNK
     Route: 065
  2. OHTUVAYRE [Suspect]
     Active Substance: ENSIFENTRINE
     Dosage: 6 MILLIGRAM, BID
  3. ARFORMOTEROL [Suspect]
     Active Substance: ARFORMOTEROL
     Dosage: 15MCG/2M NEB
  4. IPRATROPIUM [Suspect]
     Active Substance: IPRATROPIUM
     Dosage: UNK
     Route: 065
  5. ALBUTEROL SULFATE [Suspect]
     Active Substance: ALBUTEROL SULFATE
     Route: 065

REACTIONS (2)
  - Constipation [Unknown]
  - Product dose omission in error [Unknown]
